FAERS Safety Report 7471542-X (Version None)
Quarter: 2011Q2

REPORT INFORMATION
  Report Type: 
  Country: None (occurrence: None)
  Receive Date: 20110502
  Receipt Date: 20110418
  Transmission Date: 20111010
  Serious: Yes (Other)
  Sender: FDA-Public Use
  Company Number: 031703

PATIENT
  Sex: Female

DRUGS (2)
  1. LACOSAMIDE [Suspect]
     Dosage: (150 MG LOADING DOSE)
  2. PHENOBARBITAL TAB [Concomitant]

REACTIONS (1)
  - STATUS EPILEPTICUS [None]
